FAERS Safety Report 7093045-7 (Version None)
Quarter: 2010Q4

REPORT INFORMATION
  Report Type: 
  Country: None (occurrence: None)
  Receive Date: 20101018
  Receipt Date: 20100429
  Transmission Date: 20110411
  Serious: Yes (Other)
  Sender: FDA-Public Use
  Company Number: HQWYE379813JUN05

PATIENT
  Age: 67 Year
  Sex: Female

DRUGS (4)
  1. PREMARIN [Suspect]
     Indication: PRODUCT USED FOR UNKNOWN INDICATION
  2. MEDROXYPROGESTERONE ACETATE [Suspect]
     Indication: PRODUCT USED FOR UNKNOWN INDICATION
  3. PREMPRO [Suspect]
     Indication: PRODUCT USED FOR UNKNOWN INDICATION
  4. PROVERA [Suspect]
     Indication: PRODUCT USED FOR UNKNOWN INDICATION

REACTIONS (1)
  - BREAST CANCER [None]
